FAERS Safety Report 25241075 (Version 4)
Quarter: 2025Q3

REPORT INFORMATION
  Report Type: Report from Study
  Country: KR (occurrence: KR)
  Receive Date: 20250425
  Receipt Date: 20250724
  Transmission Date: 20251020
  Serious: Yes (Death, Hospitalization, Other)
  Sender: TAKEDA
  Company Number: KR-TAKEDA-2025TUS040451

PATIENT
  Age: 0 Year
  Sex: Female
  Weight: 58 kg

DRUGS (23)
  1. MARIBAVIR [Suspect]
     Active Substance: MARIBAVIR
     Indication: Cytomegalovirus infection
     Dosage: 400 MILLIGRAM, BID
     Dates: start: 20250317, end: 20250401
  2. ACETYLCYSTEINE [Concomitant]
     Active Substance: ACETYLCYSTEINE
     Indication: Productive cough
     Dosage: 600 MILLIGRAM, TID
     Dates: start: 20250328, end: 20250414
  3. RUXOLITINIB [Concomitant]
     Active Substance: RUXOLITINIB
     Indication: Graft versus host disease in liver
     Dosage: 10 MILLIGRAM, BID
     Dates: start: 20250118, end: 20250324
  4. RUXOLITINIB [Concomitant]
     Active Substance: RUXOLITINIB
     Dosage: 5 MILLIGRAM, QD
     Dates: start: 20250325, end: 20250414
  5. COUGH SYRUP [Concomitant]
     Active Substance: DEXTROMETHORPHAN HYDROBROMIDE\GUAIFENESIN
     Indication: Cough
     Dosage: 20 MILLILITER, TID
     Dates: start: 20250330, end: 20250402
  6. Cipol [Concomitant]
     Indication: Graft versus host disease
     Dosage: 25 MILLIGRAM, QD
     Dates: start: 20250210, end: 20250323
  7. Fedulow [Concomitant]
     Indication: Hyperferritinaemia
     Dosage: 40 MILLILITER, QD
     Dates: start: 20250226, end: 20250323
  8. DEXILANT [Concomitant]
     Active Substance: DEXLANSOPRAZOLE
     Indication: Gastrointestinal disorder
     Dosage: 30 MILLIGRAM, QD
     Dates: start: 20250115, end: 20250323
  9. ENTECAVIR [Concomitant]
     Active Substance: ENTECAVIR
     Indication: Hepatitis B
     Dosage: 0.5 MILLIGRAM, QD
     Dates: start: 20241009, end: 20250413
  10. NEUPOGEN [Concomitant]
     Active Substance: FILGRASTIM
     Indication: Neutropenia
     Dosage: 300 MICROGRAM, QD
     Dates: start: 20250327, end: 20250330
  11. GASTER [Concomitant]
     Active Substance: FAMOTIDINE
     Indication: Dyspepsia
     Dosage: 20 MILLIGRAM, QD
     Dates: start: 20250323, end: 20250325
  12. Daewon megestrol es [Concomitant]
     Indication: Decreased appetite
     Dosage: 20 MILLILITER, QD
     Dates: start: 20250317, end: 20250321
  13. METHYLPREDNISOLONE [Concomitant]
     Active Substance: METHYLPREDNISOLONE
     Indication: Graft versus host disease in liver
     Dosage: 30 MILLIGRAM, QD
     Dates: start: 20250330, end: 20250402
  14. MYCOPHENOLATE MOFETIL [Concomitant]
     Active Substance: MYCOPHENOLATE MOFETIL
     Indication: Graft versus host disease
     Dosage: 250 MILLIGRAM, BID
     Dates: start: 20250219, end: 20250323
  15. Tearin [Concomitant]
     Indication: Dry eye
     Dates: start: 20250203, end: 20250331
  16. ORNITHINE ASPARTATE [Concomitant]
     Active Substance: ORNITHINE ASPARTATE
     Indication: Graft versus host disease in liver
     Dosage: 2000 MILLIGRAM, QD
     Dates: start: 20250324
  17. PANTOPRAZOLE SODIUM [Concomitant]
     Active Substance: PANTOPRAZOLE SODIUM
     Indication: Gastrointestinal disorder
     Dosage: 40 MILLIGRAM, QD
     Dates: start: 20250324
  18. NOXAFIL [Concomitant]
     Active Substance: POSACONAZOLE
     Indication: Fungal infection
     Dosage: 300 MILLIGRAM, QD
     Dates: start: 20250115, end: 20250323
  19. Cresnon [Concomitant]
     Indication: Hyperlipidaemia
     Dosage: 5 MILLIGRAM, QD
     Dates: start: 20250210, end: 20250323
  20. DIETARY SUPPLEMENT\HERBALS\MILK THISTLE [Concomitant]
     Active Substance: MILK THISTLE
     Indication: Graft versus host disease in liver
     Dosage: 140 MILLIGRAM, BID
     Dates: start: 20250118
  21. TRAMADOL HYDROCHLORIDE [Concomitant]
     Active Substance: TRAMADOL HYDROCHLORIDE
     Indication: Pain
     Dosage: 50 MILLIGRAM, QD
     Dates: start: 20250327, end: 20250328
  22. URSODIOL [Concomitant]
     Active Substance: URSODIOL
     Indication: Graft versus host disease in liver
     Dosage: 400 MILLIGRAM, BID
     Dates: start: 20250203
  23. SULFAMETHOXAZOLE\TRIMETHOPRIM [Concomitant]
     Active Substance: SULFAMETHOXAZOLE\TRIMETHOPRIM
     Indication: Infection
     Dosage: UNK UNK, QD
     Dates: start: 20250203, end: 20250323

REACTIONS (9)
  - Pneumonia [Fatal]
  - Atypical haemolytic uraemic syndrome [Not Recovered/Not Resolved]
  - Pneumothorax [Recovered/Resolved]
  - Septic shock [Not Recovered/Not Resolved]
  - Neutropenia [Recovered/Resolved]
  - Peroneal nerve palsy [Not Recovered/Not Resolved]
  - Haemoptysis [Not Recovered/Not Resolved]
  - Oedema [Not Recovered/Not Resolved]
  - Petechiae [Not Recovered/Not Resolved]

NARRATIVE: CASE EVENT DATE: 20250323
